FAERS Safety Report 8896487 (Version 1)
Quarter: 2012Q4

REPORT INFORMATION
  Report Type: Spontaneous
  Country: US (occurrence: None)
  Receive Date: 20121107
  Receipt Date: 20121107
  Transmission Date: 20130627
  Serious: Yes (Other)
  Sender: FDA-Public Use
  Company Number: None

PATIENT
  Age: 26 Year
  Sex: Female
  Weight: 104.33 kg

DRUGS (1)
  1. PARAGARD [Suspect]
     Indication: BIRTH CONTROL
     Dates: start: 20120901, end: 20121106

REACTIONS (1)
  - Rash generalised [None]
